FAERS Safety Report 19012581 (Version 1)
Quarter: 2021Q1

REPORT INFORMATION
  Report Type: Spontaneous
  Country: US (occurrence: US)
  Receive Date: 20210316
  Receipt Date: 20210316
  Transmission Date: 20210420
  Serious: Yes (Death)
  Sender: FDA-Public Use
  Company Number: US-PFIZER INC-2021285445

PATIENT
  Age: 58 Year
  Sex: Male

DRUGS (1)
  1. IBRANCE [Suspect]
     Active Substance: PALBOCICLIB
     Indication: PANCREATIC CARCINOMA
     Dosage: 100 MG, CYCLIC (QD (ONCE A DAY) X 21 DAYS)
     Dates: start: 20210210

REACTIONS (1)
  - Death [Fatal]

NARRATIVE: CASE EVENT DATE: 20210302
